FAERS Safety Report 9542220 (Version 1)
Quarter: 2013Q3

REPORT INFORMATION
  Report Type: Spontaneous
  Country: GB (occurrence: None)
  Receive Date: 20130918
  Receipt Date: 20130918
  Transmission Date: 20140515
  Serious: Yes (Other)
  Sender: FDA-Public Use
  Company Number: FK201304257

PATIENT
  Age: 71 Year
  Sex: Male

DRUGS (7)
  1. FLUDARABINE [Suspect]
     Indication: B-CELL LYMPHOMA
     Dates: start: 200611, end: 200704
  2. METHYLPREDNISOLONE [Suspect]
     Indication: B-CELL LYMPHOMA
     Dates: start: 200810, end: 200812
  3. ETOPOSIDE [Suspect]
     Indication: B-CELL LYMPHOMA
     Dates: start: 200810, end: 200812
  4. CISPLATIN [Suspect]
     Indication: B-CELL LYMPHOMA
     Dates: start: 200810, end: 200812
  5. CYTARABINE [Suspect]
     Indication: B-CELL LYMPHOMA
     Dates: start: 200810, end: 200812
  6. CYCLOPHOSPHAMIDE [Suspect]
     Indication: B-CELL LYMPHOMA
     Dates: start: 200611, end: 200704
  7. RITUXIMAB [Suspect]
     Indication: B-CELL LYMPHOMA
     Dates: start: 200611, end: 200704

REACTIONS (5)
  - Chronic hepatitis B [None]
  - B-cell lymphoma recurrent [None]
  - Renal failure chronic [None]
  - No therapeutic response [None]
  - Liver injury [None]
